FAERS Safety Report 18150274 (Version 1)
Quarter: 2020Q3

REPORT INFORMATION
  Report Type: Spontaneous
  Country: US (occurrence: US)
  Receive Date: 20200814
  Receipt Date: 20200814
  Transmission Date: 20201103
  Serious: Yes (Hospitalization, Other)
  Sender: FDA-Public Use
  Company Number: US-BRISTOL-MYERS SQUIBB COMPANY-BMS-2020-063594

PATIENT
  Sex: Female
  Weight: 72.11 kg

DRUGS (4)
  1. OPDIVO [Suspect]
     Active Substance: NIVOLUMAB
     Indication: LUNG CANCER METASTATIC
     Dosage: 240 MG
     Route: 065
     Dates: end: 201802
  2. OPDIVO [Suspect]
     Active Substance: NIVOLUMAB
     Indication: METASTATIC MALIGNANT MELANOMA
  3. YERVOY [Suspect]
     Active Substance: IPILIMUMAB
     Indication: LUNG CANCER METASTATIC
     Dosage: UNK MILLIGRAM
     Route: 065
     Dates: end: 201802
  4. YERVOY [Suspect]
     Active Substance: IPILIMUMAB
     Indication: METASTATIC MALIGNANT MELANOMA

REACTIONS (3)
  - Hallucination [Unknown]
  - Rash [Unknown]
  - Mental status changes [Unknown]
